FAERS Safety Report 4798644-0 (Version None)
Quarter: 2005Q4

REPORT INFORMATION
  Report Type: 
  Country: None (occurrence: None)
  Receive Date: 20051014
  Receipt Date: 20051007
  Transmission Date: 20060501
  Serious: Yes (Death)
  Sender: FDA-Public Use
  Company Number: US-JNJFOC-20051002178

PATIENT
  Sex: Female
  Weight: 63.05 kg

DRUGS (28)
  1. FLEXERIL [Suspect]
     Indication: OSTEOARTHRITIS
     Route: 048
  2. CALCIUM GLUCONATE [Concomitant]
  3. PAXIL [Concomitant]
  4. GUAIFENESIN [Concomitant]
  5. METOCHLOPRAMIDE [Concomitant]
  6. ALPRAZOLAM [Concomitant]
  7. LIPITOR [Concomitant]
  8. ISOSORBIDE [Concomitant]
  9. ATACAND [Concomitant]
  10. THEOPHYLLINE-SR [Concomitant]
  11. MULTI-VITAMIN [Concomitant]
  12. MULTI-VITAMIN [Concomitant]
  13. MULTI-VITAMIN [Concomitant]
  14. MULTI-VITAMIN [Concomitant]
  15. MULTI-VITAMIN [Concomitant]
  16. MULTI-VITAMIN [Concomitant]
  17. MULTI-VITAMIN [Concomitant]
  18. MULTI-VITAMIN [Concomitant]
  19. ATROVENT [Concomitant]
  20. ALBUTEROL [Concomitant]
  21. ADVAIR DISKUS 100/50 [Concomitant]
  22. ADVAIR DISKUS 100/50 [Concomitant]
  23. COMBIVENT [Concomitant]
  24. COMBIVENT [Concomitant]
  25. MIACALCIN [Concomitant]
  26. FOSAMAX [Concomitant]
  27. TYLENOL (CAPLET) [Concomitant]
  28. ASPIRIN [Concomitant]

REACTIONS (1)
  - DEATH [None]
